FAERS Safety Report 23512887 (Version 8)
Quarter: 2024Q2

REPORT INFORMATION
  Report Type: Report from Study
  Country: US (occurrence: US)
  Receive Date: 20240212
  Receipt Date: 20240413
  Transmission Date: 20240716
  Serious: Yes (Hospitalization, Other)
  Sender: FDA-Public Use
  Company Number: US-JAZZ PHARMACEUTICALS-2023-US-023862

PATIENT
  Age: 38 Year
  Sex: Female

DRUGS (15)
  1. XYREM [Suspect]
     Active Substance: SODIUM OXYBATE
     Indication: Narcolepsy
     Dosage: UNK
     Route: 048
  2. XYREM [Suspect]
     Active Substance: SODIUM OXYBATE
     Indication: Cataplexy
     Dosage: 4.5 GRAM, BID
     Route: 048
  3. XYREM [Suspect]
     Active Substance: SODIUM OXYBATE
     Indication: Somnolence
     Dosage: UNK
  4. HYDROXYZINE [Suspect]
     Active Substance: HYDROXYZINE HYDROCHLORIDE
     Indication: Product used for unknown indication
  5. NICOTINE [Suspect]
     Active Substance: NICOTINE
     Indication: Product used for unknown indication
  6. PROMETHAZINE [Suspect]
     Active Substance: PROMETHAZINE HYDROCHLORIDE
     Indication: Nasal congestion
  7. GUAIFENESIN [Suspect]
     Active Substance: GUAIFENESIN
     Indication: Nasal congestion
  8. GUAIFENESIN [Suspect]
     Active Substance: GUAIFENESIN
     Indication: Cough
  9. LEVOTHYROXINE [Concomitant]
     Active Substance: LEVOTHYROXINE\LEVOTHYROXINE SODIUM
     Dosage: UNK
     Dates: start: 20231004
  10. VITAMIN D3 [Concomitant]
     Active Substance: CHOLECALCIFEROL
     Dosage: UNK
     Dates: start: 20030101
  11. VITAMIN B12 [Concomitant]
     Active Substance: CYANOCOBALAMIN
     Dosage: UNK
     Dates: start: 20030101
  12. ZYRTEC [Concomitant]
     Active Substance: CETIRIZINE HYDROCHLORIDE
     Dosage: UNK
     Dates: start: 20030101
  13. METHOCARBAMOL [Concomitant]
     Active Substance: METHOCARBAMOL
     Dosage: UNK
     Dates: start: 20130101
  14. SUNOSI [Concomitant]
     Active Substance: SOLRIAMFETOL
     Dosage: UNK
     Dates: start: 20231101
  15. CARAFATE [Concomitant]
     Active Substance: SUCRALFATE
     Indication: Product used for unknown indication
     Dosage: 0000
     Dates: start: 20240205

REACTIONS (23)
  - COVID-19 [Unknown]
  - Neoplasm malignant [Not Recovered/Not Resolved]
  - Seizure [Not Recovered/Not Resolved]
  - Feeling hot [Unknown]
  - Illness [Unknown]
  - Retching [Unknown]
  - Influenza [Unknown]
  - Delusion [Unknown]
  - Abdominal pain upper [Not Recovered/Not Resolved]
  - Nasal congestion [Unknown]
  - Somnambulism [Unknown]
  - Feeling abnormal [Unknown]
  - Nausea [Unknown]
  - Hypotension [Unknown]
  - Dyspnoea [Unknown]
  - Cough [Unknown]
  - Mania [Unknown]
  - Vomiting [Unknown]
  - Feeling abnormal [Unknown]
  - Product container issue [Unknown]
  - Intentional dose omission [Unknown]
  - Therapeutic product effect decreased [Unknown]
  - Product dose omission in error [Unknown]

NARRATIVE: CASE EVENT DATE: 20231001
